FAERS Safety Report 6446534-X (Version None)
Quarter: 2009Q4

REPORT INFORMATION
  Report Type: 
  Country: None (occurrence: None)
  Receive Date: 20091116
  Receipt Date: 20091109
  Transmission Date: 20100525
  Serious: Yes (Death, Hospitalization)
  Sender: FDA-Public Use
  Company Number: CLOF-1000704

PATIENT
  Age: 17 Year
  Sex: Male
  Weight: 73 kg

DRUGS (16)
  1. CLOFARABINE    (CLOFARABINE) SOLUTION FOR INFUSION [Suspect]
     Indication: ACUTE LYMPHOCYTIC LEUKAEMIA
     Dosage: 75 MG, QD, INTRAVENOUS
     Route: 042
     Dates: start: 20090915, end: 20090919
  2. ETOPOSIDE [Suspect]
     Indication: ACUTE LYMPHOCYTIC LEUKAEMIA
     Dosage: 188 MG, QD, INTRAVENOUS
     Route: 042
     Dates: start: 20090915, end: 20090919
  3. CYCLOPHOSPHAMIDE [Suspect]
     Indication: ACUTE LYMPHOCYTIC LEUKAEMIA
     Dosage: 830 MG, QD,
     Route: 042
     Dates: start: 20090915, end: 20090919
  4. ACLOVIR (ACICLOVIR) INTRAVENOUS INFUSION [Concomitant]
  5. ALLOPURINOL [Concomitant]
  6. DAPSONE [Concomitant]
  7. FLUCONAZOLE [Concomitant]
  8. GABAPENTIN [Concomitant]
  9. LANSOPRAZOLE [Concomitant]
  10. METHADONE (METHADONE HYDROCHLORIDE) ORAL SOLUTION [Concomitant]
  11. MORPHINE (MORPHINE HYDROCHLORIDE) UNKNOWN [Concomitant]
  12. ONDANSETRON (ONDANSETRON) INTRAVENOUS INFUSION [Concomitant]
  13. PROMETHAZINE (PROMETHAZINE) UNKNOWN [Concomitant]
  14. POLYETHYLENE GLYCOL (MACROGOL) UNKNOWN [Concomitant]
  15. DOCUSATE (DOCUSATE) [Concomitant]
  16. LOVASTATIN [Concomitant]

REACTIONS (38)
  - ANXIETY [None]
  - APNOEA [None]
  - BACTERIAL INFECTION [None]
  - BLOOD CREATINE INCREASED [None]
  - BLOOD POTASSIUM DECREASED [None]
  - BONE PAIN [None]
  - BRADYCARDIA [None]
  - BRAIN ABSCESS [None]
  - BRAIN HERNIATION [None]
  - BRAIN MIDLINE SHIFT [None]
  - BRAIN OEDEMA [None]
  - CAPILLARY LEAK SYNDROME [None]
  - CAROTID ARTERY INSUFFICIENCY [None]
  - CEREBRAL FUNGAL INFECTION [None]
  - DECREASED APPETITE [None]
  - DIABETES INSIPIDUS [None]
  - EXTRAOCULAR MUSCLE DISORDER [None]
  - FACE OEDEMA [None]
  - HAEMATOCRIT DECREASED [None]
  - HAEMORRHAGE INTRACRANIAL [None]
  - HEADACHE [None]
  - HEART RATE INCREASED [None]
  - HYPERTENSION [None]
  - INTRACRANIAL PRESSURE INCREASED [None]
  - LOSS OF CONSCIOUSNESS [None]
  - LYMPHOPENIA [None]
  - MALAISE [None]
  - NAUSEA [None]
  - NEUTROPENIC INFECTION [None]
  - PAIN IN JAW [None]
  - PCO2 DECREASED [None]
  - PLATELET COUNT DECREASED [None]
  - PUPILS UNEQUAL [None]
  - RESPIRATORY RATE INCREASED [None]
  - SEDATION [None]
  - STAPHYLOCOCCAL BACTERAEMIA [None]
  - TEMPOROMANDIBULAR JOINT SYNDROME [None]
  - WOUND INFECTION STAPHYLOCOCCAL [None]
